FAERS Safety Report 6299390-7 (Version None)
Quarter: 2009Q3

REPORT INFORMATION
  Report Type: 
  Country: None (occurrence: None)
  Receive Date: 20090806
  Receipt Date: 20090731
  Transmission Date: 20100115
  Serious: Yes (Other)
  Sender: FDA-Public Use
  Company Number: JP-ROXANE LABORATORIES, INC.-2009-RO-00769RO

PATIENT
  Age: 57 Year
  Sex: Male

DRUGS (12)
  1. METHOTREXATE [Suspect]
     Indication: BURKITT'S LYMPHOMA STAGE III
     Route: 042
  2. METHOTREXATE [Suspect]
     Route: 042
  3. CYCLOPHOSPHAMIDE [Suspect]
     Indication: BURKITT'S LYMPHOMA STAGE III
     Route: 042
  4. DEXAMETHASONE [Suspect]
     Indication: BURKITT'S LYMPHOMA STAGE III
     Dosage: 40 MG
  5. LEUCOVORIN CALCIUM [Suspect]
     Indication: DRUG TOXICITY
     Route: 042
  6. LEUCOVORIN CALCIUM [Suspect]
     Dosage: 60 MG
     Route: 042
  7. VINCRISTINE [Suspect]
     Indication: BURKITT'S LYMPHOMA STAGE III
     Dosage: 1 MG
     Route: 042
  8. DOXORUBICIN HCL [Suspect]
     Indication: BURKITT'S LYMPHOMA
     Route: 042
  9. ARA-C [Suspect]
     Indication: BURKITT'S LYMPHOMA
     Route: 042
  10. SODIUM BICARBONATE [Suspect]
     Indication: PH URINE ABNORMAL
     Dosage: 134 MEQ
  11. ACETAZOLAMIDE [Suspect]
     Indication: PH URINE ABNORMAL
     Dosage: 500 MG
     Route: 042
  12. TPN [Concomitant]
     Indication: DECREASED APPETITE

REACTIONS (7)
  - DECREASED APPETITE [None]
  - DIARRHOEA [None]
  - DRUG CLEARANCE DECREASED [None]
  - DRUG TOXICITY [None]
  - ENTEROCOCCAL BACTERAEMIA [None]
  - LIVER DISORDER [None]
  - NEUTROPENIA [None]
